FAERS Safety Report 25336140 (Version 5)
Quarter: 2025Q3

REPORT INFORMATION
  Report Type: Spontaneous
  Country: AR (occurrence: AR)
  Receive Date: 20250520
  Receipt Date: 20250721
  Transmission Date: 20251020
  Serious: No
  Sender: PFIZER
  Company Number: AR-PFIZER INC-202500100275

PATIENT
  Age: 14 Year
  Sex: Male

DRUGS (1)
  1. GENOTROPIN [Suspect]
     Active Substance: SOMATROPIN
     Indication: Short stature
     Dates: start: 20220704, end: 20250401

REACTIONS (3)
  - Device information output issue [Unknown]
  - Device physical property issue [Not Recovered/Not Resolved]
  - Drug dose omission by device [Not Recovered/Not Resolved]

NARRATIVE: CASE EVENT DATE: 20250301
